FAERS Safety Report 11994326 (Version 1)
Quarter: 2016Q1

REPORT INFORMATION
  Report Type: Spontaneous
  Country: US (occurrence: US)
  Receive Date: 20160203
  Receipt Date: 20160203
  Transmission Date: 20160526
  Serious: No
  Sender: FDA-Public Use
  Company Number: US-UCBSA-2015030864

PATIENT
  Age: 3 Year
  Sex: Male

DRUGS (1)
  1. KEPPRA [Suspect]
     Active Substance: LEVETIRACETAM
     Indication: SEIZURE
     Dosage: TWICE A DAY (1.85 MGS)

REACTIONS (4)
  - Aggression [Unknown]
  - Abnormal behaviour [Unknown]
  - Blood cholesterol increased [Unknown]
  - Blood pressure increased [Unknown]
